FAERS Safety Report 6333467-2 (Version None)
Quarter: 2009Q3

REPORT INFORMATION
  Report Type: 
  Country: None (occurrence: None)
  Receive Date: 20090828
  Receipt Date: 20090820
  Transmission Date: 20100115
  Serious: Yes (Other)
  Sender: FDA-Public Use
  Company Number: PHHY2009MX35390

PATIENT
  Age: 45 Year
  Sex: Male

DRUGS (1)
  1. GLEEVEC [Suspect]
     Indication: POLYCYTHAEMIA VERA
     Dosage: 800 MG/DAY
     Route: 048
     Dates: start: 20090301

REACTIONS (1)
  - PROSTATIC SPECIFIC ANTIGEN INCREASED [None]
